FAERS Safety Report 8810143 (Version 1)
Quarter: 2012Q4

REPORT INFORMATION
  Report Type: 
  Country: JP (occurrence: JP)
  Receive Date: 20120926
  Receipt Date: 20120926
  Transmission Date: 20130627
  Serious: Yes (Life-Threatening)
  Sender: FDA-Public Use
  Company Number: JP-ROCHE-1135691

PATIENT
  Age: 65 Year
  Sex: Female
  Weight: 38 kg

DRUGS (9)
  1. AVASTIN [Suspect]
     Indication: COLON CANCER METASTATIC
     Route: 041
     Dates: start: 20111218, end: 20120329
  2. XELODA [Suspect]
     Indication: COLON CANCER METASTATIC
     Route: 048
     Dates: start: 20111208, end: 20120418
  3. ELPLAT [Concomitant]
     Indication: COLON CANCER METASTATIC
     Route: 041
     Dates: start: 20111218, end: 20120418
  4. FAMOSTAGINE [Concomitant]
     Route: 048
     Dates: start: 20111118
  5. LOXOPROFEN SODIUM [Concomitant]
     Dosage: For uncertain dosage and ton
     Route: 048
     Dates: start: 20111116
  6. EMEND [Concomitant]
     Dosage: Dosage is uncertain.
     Route: 048
     Dates: start: 20111208
  7. PYDOXAL [Concomitant]
     Route: 048
     Dates: start: 20111212
  8. HIRUDOID [Concomitant]
     Dosage: Dosage is uncertain.
     Route: 003
     Dates: start: 20111208
  9. VITAMIN A [Concomitant]
     Dosage: Dosage is uncertain.
     Route: 003
     Dates: start: 20111208

REACTIONS (1)
  - Intestinal perforation [Recovered/Resolved]
